FAERS Safety Report 8763847 (Version 1)
Quarter: 2012Q4

REPORT INFORMATION
  Report Type: 
  Country: ZA (occurrence: ZA)
  Receive Date: 20120831
  Receipt Date: 20120831
  Transmission Date: 20130627
  Serious: Yes (Other)
  Sender: FDA-Public Use
  Company Number: PHHY2012ZA073435

PATIENT
  Age: 59 Year
  Sex: Female

DRUGS (2)
  1. ALLOPURINOL [Suspect]
  2. IMATINIB [Suspect]
     Indication: CHRONIC MYELOID LEUKAEMIA

REACTIONS (5)
  - Drug reaction with eosinophilia and systemic symptoms [Recovered/Resolved]
  - Tuberculosis [None]
  - Hepatotoxicity [None]
  - Drug level changed [None]
  - Neutropenia [None]
